FAERS Safety Report 20329394 (Version 2)
Quarter: 2022Q1

REPORT INFORMATION
  Report Type: Spontaneous
  Country: FR (occurrence: FR)
  Receive Date: 20220112
  Receipt Date: 20220308
  Transmission Date: 20220423
  Serious: Yes (Other)
  Sender: FDA-Public Use
  Company Number: FR-002147023-NVSC2021FR300685

PATIENT
  Sex: Female

DRUGS (8)
  1. CARBOPLATIN [Suspect]
     Active Substance: CARBOPLATIN
     Indication: Non-small cell lung cancer
     Dosage: UNK
     Route: 065
     Dates: start: 202011, end: 202101
  2. PACLITAXEL [Suspect]
     Active Substance: PACLITAXEL
     Indication: Non-small cell lung cancer
     Dosage: UNK (1ST CYCLE)
     Route: 065
     Dates: start: 20201117
  3. PACLITAXEL [Suspect]
     Active Substance: PACLITAXEL
     Dosage: UNK (1ST CYCLE)
     Route: 065
     Dates: start: 20201124
  4. PACLITAXEL [Suspect]
     Active Substance: PACLITAXEL
     Dosage: UNK
     Route: 065
     Dates: start: 202011, end: 202101
  5. PACLITAXEL [Suspect]
     Active Substance: PACLITAXEL
     Dosage: UNK (1ST CYCLE)
     Route: 065
     Dates: start: 20201201
  6. PACLITAXEL [Suspect]
     Active Substance: PACLITAXEL
     Dosage: UNK (2ND CYCLE)
     Route: 065
     Dates: start: 20201222
  7. PACLITAXEL [Suspect]
     Active Substance: PACLITAXEL
     Dosage: UNK (2ND CYCLE)
     Route: 065
     Dates: start: 20201229
  8. PACLITAXEL [Suspect]
     Active Substance: PACLITAXEL
     Dosage: UNK (2ND CYCLE)
     Route: 065
     Dates: start: 20210106

REACTIONS (2)
  - Non-small cell lung cancer [Unknown]
  - Malignant neoplasm progression [Unknown]
